FAERS Safety Report 9272961 (Version 4)
Quarter: 2013Q3

REPORT INFORMATION
  Report Type: Report from Study
  Country: AU (occurrence: AU)
  Receive Date: 20130506
  Receipt Date: 20130725
  Transmission Date: 20140515
  Serious: Yes (Life-Threatening, Hospitalization)
  Sender: FDA-Public Use
  Company Number: PHHY2013AU013588

PATIENT
  Age: 73 Year
  Sex: Female

DRUGS (2)
  1. SANDOSTATIN LAR [Suspect]
     Indication: CARCINOID SYNDROME
     Dosage: 60 MG, UNK
     Route: 030
     Dates: start: 20100301
  2. SANDOSTATIN LAR [Suspect]
     Dosage: 50 MG, UNK
     Route: 030

REACTIONS (7)
  - Terminal state [Unknown]
  - Cerebrovascular accident [Unknown]
  - Fall [Recovered/Resolved]
  - Memory impairment [Not Recovered/Not Resolved]
  - Weight decreased [Unknown]
  - Malaise [Unknown]
  - General physical health deterioration [Unknown]
